FAERS Safety Report 6253159-8 (Version None)
Quarter: 2009Q2

REPORT INFORMATION
  Report Type: 
  Country: None (occurrence: None)
  Receive Date: 20090629
  Receipt Date: 20090629
  Transmission Date: 20091009
  Serious: No
  Sender: FDA-Public Use
  Company Number: None

PATIENT
  Age: 62 Year
  Sex: Female
  Weight: 56.6996 kg

DRUGS (2)
  1. ZICAM RAPIDMELTS WITH VITAMIN C ZICAM LLC [Suspect]
     Indication: NASOPHARYNGITIS
     Dosage: 1 TABLET EVERY 3 HRS 5 DAYS PO
     Route: 048
     Dates: start: 20070412, end: 20090303
  2. ZINC COLD THERAPY QUICK MELTS ZINCUM ACETICUM 2X, ZINCUM WALGREENS [Suspect]
     Indication: NASOPHARYNGITIS
     Dosage: 1 TABLET EVERY 3 HRS. 5 DAYS PO
     Route: 048
     Dates: start: 20090301, end: 20090306

REACTIONS (2)
  - ANOSMIA [None]
  - HYPOSMIA [None]
